FAERS Safety Report 6378065-X (Version None)
Quarter: 2009Q3

REPORT INFORMATION
  Report Type: 
  Country: None (occurrence: None)
  Receive Date: 20090925
  Receipt Date: 20070204
  Transmission Date: 20100115
  Serious: Yes (Other)
  Sender: FDA-Public Use
  Company Number: GB-GENENTECH-290889

PATIENT
  Sex: Female

DRUGS (1)
  1. BEVACIZUMAB [Suspect]
     Indication: OBESITY
     Dosage: 10 MG, UNK
     Route: 048
     Dates: start: 20060116, end: 20060313

REACTIONS (1)
  - MYOCARDIAL INFARCTION [None]
